FAERS Safety Report 25115847 (Version 1)
Quarter: 2025Q1

REPORT INFORMATION
  Report Type: Spontaneous
  Country: CN (occurrence: CN)
  Receive Date: 20250325
  Receipt Date: 20250325
  Transmission Date: 20250409
  Serious: Yes (Other)
  Sender: ALKEM
  Company Number: CN-ALKEM LABORATORIES LIMITED-CN-ALKEM-2025-02917

PATIENT
  Age: 26 Year
  Sex: Female
  Weight: 38 kg

DRUGS (17)
  1. VANCOMYCIN [Suspect]
     Active Substance: VANCOMYCIN
     Indication: Anti-infective therapy
     Dosage: 1 GRAM, BID
     Route: 065
  2. HYDROCORTISONE [Suspect]
     Active Substance: HYDROCORTISONE
     Indication: Shock
     Dosage: 50 MILLIGRAM, QID
     Route: 065
  3. CASPOFUNGIN [Suspect]
     Active Substance: CASPOFUNGIN
     Indication: Anti-infective therapy
     Route: 065
  4. CASPOFUNGIN [Suspect]
     Active Substance: CASPOFUNGIN
     Dosage: 50 MILLIGRAMS (FROM DAY 1 TO DAY 11 IN ICU, FIRST DOSE)
     Route: 065
  5. EPINEPHRINE [Suspect]
     Active Substance: EPINEPHRINE
     Indication: Septic cardiomyopathy
     Route: 065
  6. EPINEPHRINE [Suspect]
     Active Substance: EPINEPHRINE
     Indication: Cardiogenic shock
  7. LEVOSIMENDAN [Suspect]
     Active Substance: LEVOSIMENDAN
     Indication: Septic cardiomyopathy
     Route: 065
  8. LEVOSIMENDAN [Suspect]
     Active Substance: LEVOSIMENDAN
     Indication: Cardiogenic shock
  9. MEROPENEM [Suspect]
     Active Substance: MEROPENEM
     Indication: Anti-infective therapy
     Dosage: 0.5 GRAM, TID
     Route: 065
  10. MEROPENEM [Suspect]
     Active Substance: MEROPENEM
     Dosage: 1 GRAM, TID (ON DAYS 1-3)
     Route: 065
  11. MEROPENEM [Suspect]
     Active Substance: MEROPENEM
     Dosage: 0.5 GRAM, TID
     Route: 065
  12. MEROPENEM [Suspect]
     Active Substance: MEROPENEM
     Dosage: 0.5 GRAM, TID (ON DAYS 8-10)
     Route: 065
  13. MEROPENEM [Suspect]
     Active Substance: MEROPENEM
     Dosage: 50 MILLIGRAM, OD
     Route: 065
  14. NOREPINEPHRINE [Suspect]
     Active Substance: NOREPINEPHRINE
     Indication: Septic shock
     Route: 065
  15. TEICOPLANIN [Suspect]
     Active Substance: TEICOPLANIN
     Indication: Anti-infective therapy
     Dosage: 400 MILLIGRAM, BID (FROM DAY 1 TO DAY 10 IN ICU)
     Route: 065
  16. TEICOPLANIN [Suspect]
     Active Substance: TEICOPLANIN
     Route: 065
  17. TERLIPRESSIN [Suspect]
     Active Substance: TERLIPRESSIN
     Indication: Septic shock
     Route: 065

REACTIONS (2)
  - Stillbirth [Unknown]
  - Exposure during pregnancy [Unknown]
